FAERS Safety Report 23983167 (Version 1)
Quarter: 2024Q2

REPORT INFORMATION
  Report Type: Spontaneous
  Country: CN (occurrence: CN)
  Receive Date: 20240617
  Receipt Date: 20240617
  Transmission Date: 20240716
  Serious: Yes (Other)
  Sender: FDA-Public Use
  Company Number: CN-RDY-SPO/CHN/24/0008349

PATIENT
  Age: 35 Year
  Sex: Male

DRUGS (4)
  1. OLANZAPINE [Suspect]
     Active Substance: OLANZAPINE
     Indication: Obsessive-compulsive disorder
     Dosage: 1 TABLET
     Route: 048
  2. OLANZAPINE [Suspect]
     Active Substance: OLANZAPINE
     Indication: Anxiety disorder
  3. LORAZEPAM [Concomitant]
     Active Substance: LORAZEPAM
     Indication: Obsessive-compulsive disorder
  4. LORAZEPAM [Concomitant]
     Active Substance: LORAZEPAM
     Indication: Anxiety disorder

REACTIONS (5)
  - Nephrolithiasis [Unknown]
  - Hydronephrosis [Unknown]
  - Renal impairment [Unknown]
  - Gout [Unknown]
  - Product use in unapproved indication [Unknown]

NARRATIVE: CASE EVENT DATE: 20240301
